FAERS Safety Report 11328244 (Version 4)
Quarter: 2015Q3

REPORT INFORMATION
  Report Type: Spontaneous
  Country: US (occurrence: US)
  Receive Date: 20150731
  Receipt Date: 20150804
  Transmission Date: 20151125
  Serious: Yes (Death, Hospitalization, Other)
  Sender: FDA-Public Use
  Company Number: PHHY2015US089766

PATIENT
  Age: 30 Year
  Sex: Female

DRUGS (11)
  1. MORPHINE [Suspect]
     Active Substance: MORPHINE
     Indication: ABDOMINAL PAIN
     Route: 065
  2. CEFEPIME [Suspect]
     Active Substance: CEFEPIME HYDROCHLORIDE
     Indication: BACTERIAL INFECTION
     Route: 065
  3. BETAMETHASONE. [Suspect]
     Active Substance: BETAMETHASONE
     Indication: PREMATURE SEPARATION OF PLACENTA
     Dosage: 2 DOSES 24 HOURS APART
     Route: 065
  4. MAGNESIUM SULFATE INJ [Suspect]
     Active Substance: MAGNESIUM SULFATE
     Indication: PRODUCT USED FOR UNKNOWN INDICATION
     Route: 065
  5. ACETAMINOPHEN (PARACETAMOL) [Suspect]
     Active Substance: ACETAMINOPHEN
     Indication: ABDOMINAL PAIN
     Route: 065
  6. VANCOMYCIN [Suspect]
     Active Substance: VANCOMYCIN
     Indication: STRONGYLOIDIASIS
     Route: 065
  7. CEFTRIAXONE. [Suspect]
     Active Substance: CEFTRIAXONE
     Indication: PNEUMONIA
     Route: 065
  8. METRONIDAZOLE. [Suspect]
     Active Substance: METRONIDAZOLE
     Indication: STRONGYLOIDIASIS
     Route: 065
  9. CEFAZOLIN SODIUM. [Suspect]
     Active Substance: CEFAZOLIN SODIUM
     Indication: URINARY TRACT INFECTION
     Route: 065
  10. AZITHROMYCIN [Suspect]
     Active Substance: AZITHROMYCIN ANHYDROUS
     Indication: PNEUMONIA
     Route: 065
  11. IVERMECTIN. [Suspect]
     Active Substance: IVERMECTIN
     Indication: STRONGYLOIDIASIS
     Route: 065

REACTIONS (12)
  - Systemic inflammatory response syndrome [Fatal]
  - Dyspnoea [Unknown]
  - Foetal death [Fatal]
  - Maternal exposure during pregnancy [Unknown]
  - Abdominal pain upper [Unknown]
  - Septic shock [Fatal]
  - Abdominal pain [Unknown]
  - Cardio-respiratory arrest [Fatal]
  - Vomiting [Unknown]
  - Pneumonia [Fatal]
  - Chest pain [Unknown]
  - Strongyloidiasis [Fatal]
